FAERS Safety Report 21966027 (Version 2)
Quarter: 2023Q1

REPORT INFORMATION
  Report Type: Report from Study
  Country: US (occurrence: US)
  Receive Date: 20230208
  Receipt Date: 20230213
  Transmission Date: 20230418
  Serious: No
  Sender: FDA-Public Use
  Company Number: US-002147023-NVSC2023US021382

PATIENT
  Sex: Female

DRUGS (7)
  1. BETAMETHASONE DIPROPIONATE [Suspect]
     Active Substance: BETAMETHASONE DIPROPIONATE
     Indication: Psoriasis
     Dosage: 0.05 %, BID
     Route: 061
  2. BETAMETHASONE [Suspect]
     Active Substance: BETAMETHASONE
     Indication: Psoriasis
     Dosage: 0.05 %, BID
     Route: 061
  3. BETAMETHASONE DIPROPIONATE [Suspect]
     Active Substance: BETAMETHASONE DIPROPIONATE
     Indication: Product used for unknown indication
     Dosage: UNK (LOTION)
     Route: 065
  4. CLOBETASOL [Suspect]
     Active Substance: CLOBETASOL
     Indication: Psoriasis
     Dosage: UNK
     Route: 065
  5. PREDNISOLONE [Suspect]
     Active Substance: PREDNISOLONE
     Indication: Psoriasis
     Dosage: 15MG/5ML, BID
     Route: 048
  6. HYDROXYZINE HYDROCHLORIDE [Suspect]
     Active Substance: HYDROXYZINE HYDROCHLORIDE
     Indication: Psoriasis
     Dosage: UNK
     Route: 065
  7. FLUTICASONE [Suspect]
     Active Substance: FLUTICASONE
     Indication: Hypersensitivity
     Dosage: UNK
     Route: 045

REACTIONS (1)
  - Pruritus [Not Recovered/Not Resolved]
